FAERS Safety Report 4543509-2 (Version None)
Quarter: 2004Q4

REPORT INFORMATION
  Report Type: 
  Country: None (occurrence: None)
  Receive Date: 20041229
  Receipt Date: 20041229
  Transmission Date: 20050328
  Serious: Yes (Other)
  Sender: FDA-Public Use
  Company Number: None

PATIENT
  Age: 54 Year
  Sex: Male
  Weight: 99.7913 kg

DRUGS (1)
  1. ZICAM COLD REMEDY SWABS [Suspect]
     Indication: NASOPHARYNGITIS
     Dosage: 1 SWAB   1X   NASAL
     Route: 045
     Dates: start: 20041227, end: 20041227

REACTIONS (1)
  - DYSPEPSIA [None]
